FAERS Safety Report 8012724-8 (Version None)
Quarter: 2011Q4

REPORT INFORMATION
  Report Type: 
  Country: None (occurrence: None)
  Receive Date: 20111229
  Receipt Date: 20111219
  Transmission Date: 20120403
  Serious: Yes (Hospitalization, Other)
  Sender: FDA-Public Use
  Company Number: US-BAYER-2011-107428

PATIENT
  Age: 36 Year
  Sex: Female
  Weight: 70.295 kg

DRUGS (4)
  1. MULTI-VITAMIN [Concomitant]
  2. TYLENOL PM [Concomitant]
  3. YAZ [Suspect]
     Indication: CONTRACEPTION
     Dosage: UNK
     Dates: start: 20080219, end: 20080518
  4. PERCOCET [Concomitant]
     Dosage: UNK UNK, PRN

REACTIONS (6)
  - HEPATIC HAEMORRHAGE [None]
  - CHOLELITHIASIS [None]
  - CHOLECYSTITIS CHRONIC [None]
  - HEPATIC HAEMATOMA [None]
  - INJURY [None]
  - PAIN [None]
